FAERS Safety Report 17443962 (Version 1)
Quarter: 2020Q1

REPORT INFORMATION
  Report Type: Spontaneous
  Country: US (occurrence: US)
  Receive Date: 20200220
  Receipt Date: 20200220
  Transmission Date: 20200409
  Serious: Yes (Other)
  Sender: FDA-Public Use
  Company Number: None

PATIENT
  Age: 78 Year
  Sex: Female
  Weight: 82.8 kg

DRUGS (7)
  1. TRIAMTERENE/HYDROCHLOROTHIAZIDE 37.5MG-25MG [Concomitant]
  2. METOPROLOL SUCCINATE ER 50MG [Concomitant]
  3. IBUPROFEN 800MG [Concomitant]
     Active Substance: IBUPROFEN
  4. APREPITANT 40MG [Concomitant]
  5. PRAVASTATIN. [Concomitant]
     Active Substance: PRAVASTATIN
  6. DULOXETINE 30MG [Concomitant]
     Active Substance: DULOXETINE
  7. VANCOMYCIN [Suspect]
     Active Substance: VANCOMYCIN
     Indication: ANTIBIOTIC PROPHYLAXIS
     Dosage: ?          OTHER FREQUENCY:ONCE;?
     Route: 042

REACTIONS (2)
  - Rash erythematous [None]
  - Phlebitis [None]

NARRATIVE: CASE EVENT DATE: 20200219
